FAERS Safety Report 14571307 (Version 1)
Quarter: 2018Q1

REPORT INFORMATION
  Report Type: Spontaneous
  Country: US (occurrence: US)
  Receive Date: 20180223
  Receipt Date: 20180223
  Transmission Date: 20180509
  Serious: Yes (Hospitalization)
  Sender: FDA-Public Use
  Company Number: None

PATIENT
  Age: 3 Year
  Sex: Male
  Weight: 15.9 kg

DRUGS (18)
  1. DEXAMETHASONE. [Suspect]
     Active Substance: DEXAMETHASONE
     Dates: end: 20180207
  2. RANITIDINE. [Concomitant]
     Active Substance: RANITIDINE
  3. ALLOPURINOL. [Concomitant]
     Active Substance: ALLOPURINOL
  4. INSULIN LISPRO [Concomitant]
     Active Substance: INSULIN LISPRO
  5. ONCASPAR [Suspect]
     Active Substance: PEGASPARGASE
     Dosage: 1650 UNIT
     Dates: end: 20180113
  6. ALBUTEROL. [Concomitant]
     Active Substance: ALBUTEROL
  7. LEVOFLOXACIN. [Concomitant]
     Active Substance: LEVOFLOXACIN
  8. ONDANSETRON [Concomitant]
     Active Substance: ONDANSETRON
  9. POLYETHYLENE GLYCOL [Concomitant]
     Active Substance: POLYETHYLENE GLYCOLS
  10. ISRADIPINE. [Concomitant]
     Active Substance: ISRADIPINE
  11. ACETAMINOPHEN. [Concomitant]
     Active Substance: ACETAMINOPHEN
  12. VINCRISTINE SULFATE. [Suspect]
     Active Substance: VINCRISTINE SULFATE
     Dates: end: 20180201
  13. METHOTREXATE. [Suspect]
     Active Substance: METHOTREXATE
     Dates: end: 20180117
  14. CYTARABINE. [Suspect]
     Active Substance: CYTARABINE
     Dates: end: 20180110
  15. AMLODIPINE [Concomitant]
     Active Substance: AMLODIPINE BESYLATE
  16. LEUCOVORIN CALCIUM. [Suspect]
     Active Substance: LEUCOVORIN CALCIUM
     Dates: end: 20180120
  17. FLUCONAZOLE. [Concomitant]
     Active Substance: FLUCONAZOLE
  18. SULFAMETHOXAZOLE-TRIMETHOPRIM [Concomitant]
     Active Substance: SULFAMETHOXAZOLE\TRIMETHOPRIM

REACTIONS (7)
  - Enterocolitis [None]
  - Small intestinal perforation [None]
  - Haematemesis [None]
  - Hypotension [None]
  - Oesophagitis [None]
  - Pneumatosis intestinalis [None]
  - Haemoglobin decreased [None]

NARRATIVE: CASE EVENT DATE: 20180208
